FAERS Safety Report 6647503-7 (Version None)
Quarter: 2010Q1

REPORT INFORMATION
  Report Type: 
  Country: None (occurrence: None)
  Receive Date: 20100323
  Receipt Date: 20100310
  Transmission Date: 20100710
  Serious: Yes (Death, Other)
  Sender: FDA-Public Use
  Company Number: US-ROCHE-692073

PATIENT
  Sex: Female
  Weight: 70.3 kg

DRUGS (1)
  1. CELLCEPT [Suspect]
     Dosage: DOSING FREQUENCY: DAILY
     Route: 048

REACTIONS (2)
  - BLOOD PRESSURE DECREASED [None]
  - DEATH [None]
